FAERS Safety Report 18400451 (Version 5)
Quarter: 2021Q2

REPORT INFORMATION
  Report Type: Spontaneous
  Country: US (occurrence: US)
  Receive Date: 20201019
  Receipt Date: 20210414
  Transmission Date: 20210717
  Serious: Yes (Hospitalization, Other)
  Sender: FDA-Public Use
  Company Number: US-PFIZER INC-2020400794

PATIENT
  Age: 58 Year
  Sex: Female

DRUGS (8)
  1. OXALIPLATIN. [Suspect]
     Active Substance: OXALIPLATIN
     Dosage: 65 MG/M2, CYCLIC
  2. 5 FLUROURACIL [Concomitant]
     Active Substance: FLUOROURACIL
     Indication: COLON CANCER STAGE III
     Dosage: UNK, CYCLIC
  3. IRINOTECAN [Concomitant]
     Active Substance: IRINOTECAN
     Indication: COLON CANCER STAGE III
     Dosage: UNK, CYCLIC
  4. OXALIPLATIN. [Suspect]
     Active Substance: OXALIPLATIN
     Dosage: 55 MG, CYCLIC
  5. DEXAMETHASONE. [Concomitant]
     Active Substance: DEXAMETHASONE
     Indication: PROPHYLAXIS
     Dosage: 20 MG
  6. OXALIPLATIN. [Suspect]
     Active Substance: OXALIPLATIN
     Indication: COLON CANCER STAGE III
     Dosage: UNK, CYCLIC (12 CYCLES)
  7. LEUCOVORIN [FOLINIC ACID] [Concomitant]
     Active Substance: LEUCOVORIN
     Indication: COLON CANCER STAGE III
     Dosage: UNK, CYCLIC
  8. BEVACIZUMAB. [Concomitant]
     Active Substance: BEVACIZUMAB
     Indication: COLON CANCER STAGE III
     Dosage: UNK, CYCLIC

REACTIONS (1)
  - Immune thrombocytopenia [Recovered/Resolved]
